FAERS Safety Report 6693413-9 (Version None)
Quarter: 2010Q2

REPORT INFORMATION
  Report Type: 
  Country: None (occurrence: None)
  Receive Date: 20100423
  Receipt Date: 20100415
  Transmission Date: 20101027
  Serious: Yes (Hospitalization, Other)
  Sender: FDA-Public Use
  Company Number: US-ASTRAZENECA-2007UW01963

PATIENT
  Age: 20850 Day
  Sex: Female
  Weight: 87.1 kg

DRUGS (64)
  1. SEROQUEL [Suspect]
     Indication: SLEEP DISORDER
     Dosage: 25 MG TO 100 MG
     Route: 048
     Dates: start: 20031009, end: 20060320
  2. SEROQUEL [Suspect]
     Indication: INSOMNIA
     Dosage: 25 MG TO 100 MG
     Route: 048
     Dates: start: 20031009, end: 20060320
  3. SEROQUEL [Suspect]
     Route: 048
     Dates: start: 20031204
  4. SEROQUEL [Suspect]
     Route: 048
     Dates: start: 20031204
  5. SEROQUEL [Suspect]
     Dosage: 25 MG TO 50 MG
     Route: 048
     Dates: start: 20031009
  6. SEROQUEL [Suspect]
     Dosage: 25 MG TO 50 MG
     Route: 048
     Dates: start: 20031009
  7. ZOLOFT [Concomitant]
     Dosage: 50 TO 200 MG
     Route: 048
     Dates: start: 20031204
  8. ZOLOFT [Concomitant]
     Route: 048
     Dates: start: 20040107
  9. NEURONTIN [Concomitant]
     Indication: CONVULSION
     Dates: start: 20030328
  10. NEURONTIN [Concomitant]
     Indication: HEADACHE
     Dates: start: 20030328
  11. PYRIDOSTIGM [Concomitant]
  12. POTASSIUM [Concomitant]
     Dosage: 10 TO 20 MEQ, EVERY WEEK, DAILY
     Dates: start: 20030328
  13. PROCHLORPERAZINE [Concomitant]
     Indication: NAUSEA
     Route: 048
     Dates: start: 20040102
  14. CELEBREX [Concomitant]
     Dates: start: 20040102
  15. SYNTHROID [Concomitant]
     Indication: HYPOTHYROIDISM
     Route: 048
     Dates: start: 20030328
  16. SYNTHROID [Concomitant]
     Route: 048
     Dates: start: 20040102
  17. MIRTAZAPINE [Concomitant]
     Route: 048
     Dates: start: 20040107
  18. PREDNISOLONE [Concomitant]
     Indication: CHRONIC OBSTRUCTIVE PULMONARY DISEASE
     Dates: start: 20030708
  19. LEVAQUIN [Concomitant]
  20. BIAXIN [Concomitant]
  21. XOPENEX [Concomitant]
     Indication: CHRONIC OBSTRUCTIVE PULMONARY DISEASE
     Dosage: EVERY EIGHT HOURS AS PER REQUIRED
  22. METFORMIN [Concomitant]
  23. NICOTROL [Concomitant]
  24. LORATADINE [Concomitant]
  25. PLAVIX [Concomitant]
  26. MOBIC [Concomitant]
  27. LASIX [Concomitant]
     Indication: CARDIAC FAILURE CONGESTIVE
     Dosage: 20 TO 40 MG
     Route: 048
     Dates: start: 20030328
  28. COMBIVENT [Concomitant]
     Indication: DYSPNOEA
     Dosage: TWO PUFFS FOUR TIMES A DAY
     Dates: start: 20030708
  29. IBUPROFEN [Concomitant]
     Dosage: 800-2400 MG
     Route: 048
     Dates: start: 20030630
  30. SULFASALAZINE [Concomitant]
  31. APAP W/ CODEINE [Concomitant]
  32. MEPERIDINE HCL [Concomitant]
  33. MECLIZINE [Concomitant]
  34. CYMBALTA [Concomitant]
  35. NEXIUM [Concomitant]
     Route: 048
     Dates: start: 20030328
  36. URSODIOL [Concomitant]
  37. KETEK [Concomitant]
  38. METHYLPRED [Concomitant]
  39. DUONEB [Concomitant]
  40. ZETIA [Concomitant]
  41. LEVOTHYROXINE SODIUM [Concomitant]
  42. HUMALOG [Concomitant]
  43. NYSTATIN [Concomitant]
  44. FEXOFENADINE [Concomitant]
  45. AMITRIPTYLINE HCL [Concomitant]
  46. CRESTOR [Concomitant]
  47. SERTRALINE HCL [Concomitant]
  48. GABAPENTIN [Concomitant]
  49. CHANTIX [Concomitant]
  50. DEPAKOTE [Concomitant]
     Indication: CONVULSION
     Dosage: 500 MG TWO, TWO TIMES A DAY
     Route: 048
     Dates: start: 20030328
  51. PHENOBARBITAL TAB [Concomitant]
     Indication: CONVULSION
     Route: 048
     Dates: start: 20030328
  52. ZOCOR [Concomitant]
     Indication: HYPERLIPIDAEMIA
     Dates: start: 20030328
  53. TIAZAC [Concomitant]
     Indication: HYPERTENSION
     Route: 048
     Dates: start: 20030328
  54. REGLAN [Concomitant]
     Dates: start: 20030328
  55. LOPERAMIDE [Concomitant]
     Indication: DIARRHOEA
     Dates: start: 20030708
  56. ASPIRIN [Concomitant]
     Dates: start: 20030328
  57. MYSOLINE [Concomitant]
     Route: 048
     Dates: start: 20031204
  58. COMPAZINE [Concomitant]
     Dosage: 25 MG TWO TIMES A DAY AS PER REQUIRED
     Dates: start: 20030708
  59. ZYRTEC [Concomitant]
     Dates: start: 20031204
  60. ATIVAN [Concomitant]
     Indication: CONVULSION
     Dosage: 1 MG AS PER REQUIRED
     Dates: start: 20030708
  61. FAMOTIDINE [Concomitant]
     Indication: GASTROOESOPHAGEAL REFLUX DISEASE
     Dates: start: 20030708
  62. LEXAPRO [Concomitant]
     Indication: DEPRESSION
     Dates: start: 20030708
  63. MESTINON [Concomitant]
     Indication: MYASTHENIA GRAVIS
     Dosage: 60 MG TO 180 MG
     Dates: start: 20030323
  64. ACTIGALL [Concomitant]
     Route: 048
     Dates: start: 20050711

REACTIONS (8)
  - BLOOD CHOLESTEROL INCREASED [None]
  - CHOLECYSTITIS CHRONIC [None]
  - DIABETIC NEUROPATHY [None]
  - GALLBLADDER OPERATION [None]
  - LEUKOPLAKIA [None]
  - SENSATION OF FOREIGN BODY [None]
  - TYPE 2 DIABETES MELLITUS [None]
  - VOCAL CORD POLYP [None]
